FAERS Safety Report 4377796-0 (Version None)
Quarter: 2004Q2

REPORT INFORMATION
  Report Type: 
  Country: None (occurrence: None)
  Receive Date: 20040614
  Receipt Date: 20040614
  Transmission Date: 20050107
  Serious: Yes (Hospitalization)
  Sender: FDA-Public Use
  Company Number: None

PATIENT
  Age: 59 Year
  Sex: Female

DRUGS (8)
  1. TAXOTERE [Suspect]
     Indication: NEOPLASM RECURRENCE
     Dosage: PT GIVEN IV RECEIVED ONE DOSE
     Route: 042
     Dates: start: 20040602
  2. TAXOTERE [Suspect]
     Indication: SINUS CANCER METASTATIC
     Dosage: PT GIVEN IV RECEIVED ONE DOSE
     Route: 042
     Dates: start: 20040602
  3. CARBOPLATIN [Suspect]
     Indication: NEOPLASM RECURRENCE
     Dosage: SCHEDULED DAY 1,8,15 OF 28 DAY CYCLE
     Dates: start: 20040602
  4. CARBOPLATIN [Suspect]
     Indication: SINUS CANCER METASTATIC
     Dosage: SCHEDULED DAY 1,8,15 OF 28 DAY CYCLE
     Dates: start: 20040602
  5. IFOSFAMIDE [Suspect]
     Indication: NEOPLASM RECURRENCE
     Dosage: SCHEDULED DAY 1,8,15 OF 28 DAY CYCLE
     Dates: start: 20040602
  6. IFOSFAMIDE [Suspect]
     Indication: SINUS CANCER METASTATIC
     Dosage: SCHEDULED DAY 1,8,15 OF 28 DAY CYCLE
     Dates: start: 20040602
  7. MESNA [Suspect]
     Indication: NEOPLASM RECURRENCE
     Dosage: SCHEDULED DAY 1,8,15 OF 28 DAY CYCLE
     Dates: start: 20040602
  8. MESNA [Suspect]
     Indication: SINUS CANCER METASTATIC
     Dosage: SCHEDULED DAY 1,8,15 OF 28 DAY CYCLE
     Dates: start: 20040602

REACTIONS (7)
  - DEHYDRATION [None]
  - HYPOVOLAEMIA [None]
  - NAUSEA [None]
  - NEOPLASM RECURRENCE [None]
  - PAIN [None]
  - SINUS CANCER METASTATIC [None]
  - VOMITING [None]
